FAERS Safety Report 15542767 (Version 1)
Quarter: 2018Q4

REPORT INFORMATION
  Report Type: Spontaneous
  Country: FR (occurrence: FR)
  Receive Date: 20181023
  Receipt Date: 20181023
  Transmission Date: 20190205
  Serious: Yes (Hospitalization, Other)
  Sender: FDA-Public Use
  Company Number: FR-JNJFOC-20181027416

PATIENT
  Age: 37 Year
  Sex: Female

DRUGS (1)
  1. INFLIXIMAB, RECOMBINANT [Suspect]
     Active Substance: INFLIXIMAB
     Indication: COLITIS ULCERATIVE
     Dosage: START PERIOD WAS REPORTED AS 23 DAYS
     Route: 042
     Dates: start: 20161227, end: 20170125

REACTIONS (3)
  - Off label use [Unknown]
  - Colitis [Recovered/Resolved with Sequelae]
  - Product use issue [Unknown]

NARRATIVE: CASE EVENT DATE: 20161227
